FAERS Safety Report 10775890 (Version 1)
Quarter: 2015Q1

REPORT INFORMATION
  Report Type: Spontaneous
  Country: US (occurrence: None)
  Receive Date: 20150205
  Receipt Date: 20150205
  Transmission Date: 20150721
  Serious: No
  Sender: FDA-Public Use
  Company Number: None

PATIENT
  Age: 77 Year
  Sex: Female
  Weight: 56.25 kg

DRUGS (3)
  1. LOSORTAN POTASSIUM [Concomitant]
     Active Substance: LOSARTAN POTASSIUM
  2. TIZANIDINE GENERIC OF ZANAFLEX [Suspect]
     Active Substance: TIZANIDINE
     Indication: MUSCLE STRAIN
     Dosage: ONE EVERY 8 HOURS THREE TIMES DAILY TAKEN BY MOUTH
     Route: 048
     Dates: start: 20141218
  3. VITAMINS [Concomitant]
     Active Substance: VITAMINS

REACTIONS (2)
  - Dizziness [None]
  - Blood pressure decreased [None]

NARRATIVE: CASE EVENT DATE: 20150201
